FAERS Safety Report 21051840 (Version 1)
Quarter: 2022Q3

REPORT INFORMATION
  Report Type: Spontaneous
  Country: US (occurrence: None)
  Receive Date: 20220706
  Receipt Date: 20220706
  Transmission Date: 20221026
  Serious: Yes (Disabling)
  Sender: FDA-Public Use
  Company Number: None

PATIENT
  Age: 62 Year
  Sex: Female
  Weight: 83.25 kg

DRUGS (7)
  1. PAXLOVID [Suspect]
     Active Substance: NIRMATRELVIR\RITONAVIR
     Indication: COVID-19
     Dates: start: 20220509, end: 20220514
  2. Levothoroxine [Concomitant]
  3. ESTRADIOL [Concomitant]
     Active Substance: ESTRADIOL
  4. LEXAPRO [Concomitant]
     Active Substance: ESCITALOPRAM OXALATE
  5. hydroclorothizizde [Concomitant]
  6. VITAMIN D3 [Concomitant]
     Active Substance: CHOLECALCIFEROL
  7. OCUVITE [Concomitant]
     Active Substance: VITAMINS

REACTIONS (3)
  - Paraesthesia [None]
  - Hypoaesthesia [None]
  - Gait inability [None]

NARRATIVE: CASE EVENT DATE: 20220513
